FAERS Safety Report 6812668-0 (Version None)
Quarter: 2010Q3

REPORT INFORMATION
  Report Type: 
  Country: None (occurrence: None)
  Receive Date: 20100701
  Receipt Date: 20100625
  Transmission Date: 20110219
  Serious: Yes (Hospitalization)
  Sender: FDA-Public Use
  Company Number: BR-ROCHE-710330

PATIENT
  Sex: Female
  Weight: 53 kg

DRUGS (2)
  1. RIVOTRIL [Suspect]
     Indication: SLEEP DISORDER THERAPY
     Dosage: THE PATIENT TOOK ONE TABLET OF 0.5 MG AT NIGHT
     Route: 048
     Dates: start: 20050101
  2. NORTRIPTYLINE HCL [Suspect]
     Indication: MIGRAINE
     Dosage: FREQUENCY: ONE TABLET A DAY
     Route: 065
     Dates: start: 20100522

REACTIONS (11)
  - DIZZINESS [None]
  - DRY MOUTH [None]
  - HYPERTENSION [None]
  - HYPOTENSION [None]
  - INCREASED UPPER AIRWAY SECRETION [None]
  - MALAISE [None]
  - MIGRAINE [None]
  - PAIN [None]
  - PALLOR [None]
  - TACHYCARDIA [None]
  - TENSION [None]
